FAERS Safety Report 7821831-1 (Version None)
Quarter: 2011Q4

REPORT INFORMATION
  Report Type: 
  Country: None (occurrence: None)
  Receive Date: 20111018
  Receipt Date: 20101019
  Transmission Date: 20120403
  Serious: No
  Sender: FDA-Public Use
  Company Number: US-ASTRAZENECA-2010SE49434

PATIENT
  Age: 40 Year
  Sex: Female
  Weight: 61.2 kg

DRUGS (2)
  1. FLONASE [Concomitant]
  2. SYMBICORT [Suspect]
     Indication: ASTHMA
     Dosage: 160/4.5 UG BID
     Route: 055

REACTIONS (3)
  - DRUG DOSE OMISSION [None]
  - CHEST DISCOMFORT [None]
  - DYSPNOEA [None]
